FAERS Safety Report 5471047-1 (Version None)
Quarter: 2007Q3

REPORT INFORMATION
  Report Type: 
  Country: None (occurrence: None)
  Receive Date: 20070928
  Receipt Date: 20070926
  Transmission Date: 20080115
  Serious: Yes (Other)
  Sender: FDA-Public Use
  Company Number: D0054664A

PATIENT
  Sex: Male

DRUGS (3)
  1. AVODART [Suspect]
     Indication: BENIGN PROSTATIC HYPERPLASIA
     Route: 048
  2. XIMOVAN [Concomitant]
     Indication: SLEEP DISORDER
     Dosage: 1.75MG PER DAY
     Route: 048
  3. HOMEOPATHIC MEDICATION FOR SLEEPING DISTURBANCE [Concomitant]
     Indication: SLEEP DISORDER
     Route: 048

REACTIONS (1)
  - ERECTILE DYSFUNCTION [None]
